FAERS Safety Report 16932922 (Version 1)
Quarter: 2019Q4

REPORT INFORMATION
  Report Type: Spontaneous
  Country: AU (occurrence: AU)
  Receive Date: 20191018
  Receipt Date: 20191018
  Transmission Date: 20200122
  Serious: Yes (Hospitalization, Other)
  Sender: FDA-Public Use
  Company Number: NVSC2019AU004356

PATIENT
  Sex: Female

DRUGS (3)
  1. AMIODARONE SANDOZ [Suspect]
     Active Substance: AMIODARONE
     Indication: PRODUCT USED FOR UNKNOWN INDICATION
     Dosage: 600 MG, QD (IN MID MAY)
     Route: 065
     Dates: start: 201905
  2. AMIODARONE SANDOZ [Suspect]
     Active Substance: AMIODARONE
     Dosage: 200 MG, QOD (EVERY SECOND DAY)
     Route: 065
     Dates: start: 201906
  3. AMIODARONE SANDOZ [Suspect]
     Active Substance: AMIODARONE
     Dosage: 200 MG, QD
     Route: 065

REACTIONS (3)
  - Abnormal dreams [Unknown]
  - Tremor [Unknown]
  - Nightmare [Unknown]

NARRATIVE: CASE EVENT DATE: 2019
